FAERS Safety Report 18962817 (Version 1)
Quarter: 2021Q1

REPORT INFORMATION
  Report Type: Spontaneous
  Country: US (occurrence: US)
  Receive Date: 20210303
  Receipt Date: 20210303
  Transmission Date: 20210420
  Serious: No
  Sender: FDA-Public Use
  Company Number: None

PATIENT
  Age: 2 Year
  Sex: Male
  Weight: 17.3 kg

DRUGS (7)
  1. G?CSF(FILGRASTIM, AMGEN) 840MG [Suspect]
     Active Substance: FILGRASTIM
     Dates: end: 20210228
  2. ETOPOSIDE (VP?16) 560MG [Suspect]
     Active Substance: ETOPOSIDE
     Dates: end: 20210215
  3. THIOTEPA 600MG [Suspect]
     Active Substance: THIOTEPA
     Dates: end: 20201223
  4. CARBOPLATIN 800MG [Suspect]
     Active Substance: CARBOPLATIN
     Dates: end: 20210215
  5. CYCLOPHOSPHAMIDE 4000MG [Suspect]
     Active Substance: CYCLOPHOSPHAMIDE
     Dates: end: 20201226
  6. MESNA 7200MG [Suspect]
     Active Substance: MESNA
     Dates: end: 20201226
  7. MELPHALAN 120MG [Suspect]
     Active Substance: MELPHALAN
     Dates: end: 20210214

REACTIONS (13)
  - Multiple organ dysfunction syndrome [None]
  - Blood culture positive [None]
  - Renal failure [None]
  - Coagulopathy [None]
  - Hepatorenal syndrome [None]
  - Hepatomegaly [None]
  - Venoocclusive disease [None]
  - Hypoxia [None]
  - Renal replacement therapy [None]
  - Respiratory distress [None]
  - Ascites [None]
  - Septic shock [None]
  - Thrombocytopenia [None]

NARRATIVE: CASE EVENT DATE: 20210226
